FAERS Safety Report 19420716 (Version 11)
Quarter: 2023Q1

REPORT INFORMATION
  Report Type: Report from Study
  Country: CN (occurrence: None)
  Receive Date: 20210616
  Receipt Date: 20230220
  Transmission Date: 20230418
  Serious: Yes (Death, Life-Threatening)
  Sender: FDA-Public Use
  Company Number: CN-ROCHE-2845935

PATIENT
  Age: 69 Year
  Sex: Male
  Weight: 70 kg

DRUGS (24)
  1. ATEZOLIZUMAB [Suspect]
     Active Substance: ATEZOLIZUMAB
     Indication: Lung adenocarcinoma
     Dosage: MOST RECENT DOSE RECEIVED ON 28/MAY/2021
     Route: 041
     Dates: start: 20210201
  2. BEVACIZUMAB [Suspect]
     Active Substance: BEVACIZUMAB
     Indication: Lung adenocarcinoma
     Dosage: ON 07/APR/2021, HE RECEIVED MOST RECENT DOSE RECEIVED OF BEVACIZUMAB (1065 MG) PRIOR TO ONSET OF SER
     Route: 042
     Dates: start: 20210201
  3. CARBOPLATIN [Suspect]
     Active Substance: CARBOPLATIN
     Indication: Lung adenocarcinoma
     Dosage: ON 07/APR/2021, HE RECEIVED MOST RECENT DOSE OF CARBOPLATIN (593 MG) PRIOR TO ONSET OF SERIOUS ADVER
     Route: 042
     Dates: start: 20210201
  4. PEMETREXED [Suspect]
     Active Substance: PEMETREXED
     Indication: Lung adenocarcinoma
     Dosage: ON 28/MAY/2021, HE RECEIVED MOST RECENT DOSE OF PEMETREXED (679 MG) PRIOR TO ONSET OF SERIOUS ADVERS
     Route: 042
     Dates: start: 20210201
  5. ATORVASTATIN CALCIUM [Concomitant]
     Active Substance: ATORVASTATIN CALCIUM
     Indication: Cerebral infarction
     Dates: start: 20210415
  6. DEXAMETHASONE [Concomitant]
     Active Substance: DEXAMETHASONE
     Route: 048
     Dates: start: 20210507, end: 20210509
  7. DEXAMETHASONE [Concomitant]
     Active Substance: DEXAMETHASONE
     Route: 048
     Dates: start: 20210527, end: 20210529
  8. ALBUMIN HUMAN [Concomitant]
     Active Substance: ALBUMIN HUMAN
     Indication: Hypoalbuminaemia
     Dates: start: 20210508, end: 20210512
  9. ALBUMIN HUMAN [Concomitant]
     Active Substance: ALBUMIN HUMAN
     Dates: start: 20210609, end: 20210610
  10. TROPISETRON HYDROCHLORIDE [Concomitant]
     Active Substance: TROPISETRON HYDROCHLORIDE
     Indication: Nausea
     Dates: start: 20210508, end: 20210512
  11. TROPISETRON HYDROCHLORIDE [Concomitant]
     Active Substance: TROPISETRON HYDROCHLORIDE
     Indication: Vomiting
     Dates: start: 20210528, end: 20210530
  12. OMEPRAZOLE [Concomitant]
     Active Substance: OMEPRAZOLE
     Dates: start: 20210608, end: 20210612
  13. HEPARIN SODIUM [Concomitant]
     Active Substance: HEPARIN SODIUM
     Dates: start: 20210608, end: 20210612
  14. GLUTATHIONE [Concomitant]
     Active Substance: GLUTATHIONE
     Dates: start: 20210609, end: 20210612
  15. MONTMORILLONITE [Concomitant]
     Active Substance: MONTMORILLONITE
     Dates: start: 20210609, end: 20210611
  16. MOXIFLOXACIN HYDROCHLORIDE [Concomitant]
     Active Substance: MOXIFLOXACIN HYDROCHLORIDE
  17. SODIUM BICARBONATE [Concomitant]
     Active Substance: SODIUM BICARBONATE
     Dosage: REGULATE ELECTROLYTE AND ACID-BASE?BALANCE
     Dates: start: 20210608, end: 20210610
  18. ADRENALIN [Concomitant]
     Active Substance: EPINEPHRINE
     Dosage: RESCUE MEDICATION
     Dates: start: 20210608, end: 20210608
  19. MIDAZOLAM [Concomitant]
     Active Substance: MIDAZOLAM
     Dates: start: 20210608, end: 20210612
  20. DOPAMINE [Concomitant]
     Active Substance: DOPAMINE HYDROCHLORIDE
     Dates: start: 20210608, end: 20210608
  21. REMIFENTANIL [Concomitant]
     Active Substance: REMIFENTANIL
     Dates: start: 20210608, end: 20210611
  22. CALCIUM GLUCONATE [Concomitant]
     Active Substance: CALCIUM GLUCONATE
     Dates: start: 20210608, end: 20210611
  23. THROMBOPOIETIN [Concomitant]
     Active Substance: THROMBOPOIETIN
     Dates: start: 20210610, end: 20210611
  24. DEXAMETHASONE SODIUM PHOSPHATE [Concomitant]
     Active Substance: DEXAMETHASONE SODIUM PHOSPHATE
     Route: 042
     Dates: start: 20210611, end: 20210611

REACTIONS (3)
  - Respiratory failure [Fatal]
  - Pneumonia [Not Recovered/Not Resolved]
  - Myocarditis [Not Recovered/Not Resolved]

NARRATIVE: CASE EVENT DATE: 20210607
